FAERS Safety Report 5025991-X (Version None)
Quarter: 2006Q2

REPORT INFORMATION
  Report Type: 
  Country: None (occurrence: None)
  Receive Date: 20060427
  Receipt Date: 20051128
  Transmission Date: 20061013
  Serious: Yes (Other)
  Sender: FDA-Public Use
  Company Number: 2005137240

PATIENT
  Age: 7 Year
  Sex: Male
  Weight: 27.2158 kg

DRUGS (4)
  1. ZITHROMAX [Suspect]
     Indication: PYREXIA
     Dosage: ORAL
     Route: 048
     Dates: start: 20050919, end: 20050923
  2. CARNITOR (LEVOCARNITINE) [Concomitant]
  3. CENTRUM (MINERALS NOS, VITAMINS NOS) [Concomitant]
  4. VITAMINS (VITAMINS) [Concomitant]

REACTIONS (2)
  - BLOOD KETONE BODY DECREASED [None]
  - CONVULSION [None]
